FAERS Safety Report 8513557-6 (Version None)
Quarter: 2012Q3

REPORT INFORMATION
  Report Type: 
  Country: None (occurrence: None)
  Receive Date: 20120717
  Receipt Date: 20120703
  Transmission Date: 20120928
  Serious: Yes (Other)
  Sender: FDA-Public Use
  Company Number: BR-AMGEN-BRASP2012030436

PATIENT
  Age: 56 Year
  Sex: Male
  Weight: 67 kg

DRUGS (6)
  1. ENBREL [Suspect]
     Indication: ANKYLOSING SPONDYLITIS
     Dosage: 50 MG, ONCE WEEKLY
     Route: 058
     Dates: start: 20120405
  2. ATENOLOL [Concomitant]
     Indication: HYPERTENSION
     Dosage: 50 MG IF PRESSURE WAS STABLE/IF UNSTABLE: 100 MG
     Dates: start: 19910101
  3. DAFLON                             /00426001/ [Concomitant]
     Indication: PERIPHERAL VASCULAR DISORDER
     Dosage: 500 MG, UNK
     Dates: start: 20030101
  4. ENBREL [Suspect]
     Dosage: 2ND INJECTION
     Dates: start: 20120101
  5. DICLOFENAC SODIUM [Concomitant]
     Indication: ANKYLOSING SPONDYLITIS
     Dosage: 100 MG, UNK
     Dates: start: 19960101
  6. ENBREL [Suspect]
     Dosage: 3RD INJECTION
     Dates: start: 20120101

REACTIONS (13)
  - POISONING [None]
  - FEELING COLD [None]
  - HOT FLUSH [None]
  - PYREXIA [None]
  - DIZZINESS [None]
  - CHEST DISCOMFORT [None]
  - BLOOD PRESSURE INCREASED [None]
  - BLOOD PRESSURE DECREASED [None]
  - FATIGUE [None]
  - PALLOR [None]
  - DEPRESSED MOOD [None]
  - MYALGIA [None]
  - ERYTHEMA [None]
